FAERS Safety Report 5008090-2 (Version None)
Quarter: 2006Q1

REPORT INFORMATION
  Report Type: 
  Country: None (occurrence: None)
  Receive Date: 20060329
  Receipt Date: 20060201
  Transmission Date: 20060701
  Serious: Yes (Other)
  Sender: FDA-Public Use
  Company Number: A030200600595

PATIENT
  Sex: 0

DRUGS (1)
  1. AMBIEN [Suspect]
     Dosage: ORAL
     Route: 048

REACTIONS (1)
  - HALLUCINATION, VISUAL [None]
